FAERS Safety Report 9119900 (Version 1)
Quarter: 2013Q1

REPORT INFORMATION
  Report Type: Spontaneous
  Country: US (occurrence: US)
  Receive Date: 20130226
  Receipt Date: 20130226
  Transmission Date: 20140127
  Serious: Yes (Hospitalization)
  Sender: FDA-Public Use
  Company Number: US-BAYER-2013-023105

PATIENT
  Age: 21 Year
  Sex: Female

DRUGS (6)
  1. YAZ [Suspect]
     Indication: MENSTRUAL CYCLE MANAGEMENT
  2. GIANVI [Suspect]
  3. CRESTOR [Concomitant]
     Dosage: 20 MG, DAILY
     Route: 048
  4. IBUPROFEN [Concomitant]
     Dosage: 600 MG, EVERY 6 HOURS PRN
  5. VENTOLIN HFA [Concomitant]
  6. ALBUTEROL [Concomitant]

REACTIONS (1)
  - Pulmonary embolism [None]
